FAERS Safety Report 5644390-0 (Version None)
Quarter: 2008Q1

REPORT INFORMATION
  Report Type: 
  Country: None (occurrence: None)
  Receive Date: 20080229
  Receipt Date: 20080218
  Transmission Date: 20080703
  Serious: Yes (Death, Life-Threatening)
  Sender: FDA-Public Use
  Company Number: DE-AMGEN-UK266181

PATIENT
  Sex: Female

DRUGS (14)
  1. NEUPOGEN [Suspect]
     Route: 042
     Dates: start: 20050309
  2. PREDNISONE TAB [Concomitant]
     Route: 048
     Dates: start: 20050302
  3. FORMOTEROL [Concomitant]
     Route: 055
     Dates: start: 20050127
  4. OMEPRAZOLE [Concomitant]
     Route: 048
     Dates: start: 20050302
  5. GENTAMICIN [Concomitant]
     Route: 042
     Dates: start: 20050202
  6. VANCOMYCIN [Concomitant]
     Route: 042
     Dates: start: 20050127
  7. HEPARIN CALCIUM [Concomitant]
     Route: 058
     Dates: start: 20050127
  8. METOPROLOL TARTRATE [Concomitant]
     Route: 048
     Dates: start: 20050203
  9. ZOLPIDEM [Concomitant]
     Route: 048
     Dates: start: 20050210
  10. AZATHIOPRINE [Concomitant]
     Route: 048
     Dates: start: 20050127
  11. SODIUM CHLORIDE INJ [Concomitant]
     Route: 042
     Dates: start: 20050127
  12. LEVOTHYROXINE SODIUM [Concomitant]
     Route: 048
     Dates: start: 20050127
  13. CIPROFLOXACIN [Concomitant]
     Route: 042
  14. RINGER'S [Concomitant]
     Route: 042

REACTIONS (1)
  - TOXIC EPIDERMAL NECROLYSIS [None]
